FAERS Safety Report 6907416-X (Version None)
Quarter: 2010Q3

REPORT INFORMATION
  Report Type: 
  Country: None (occurrence: None)
  Receive Date: 20100712
  Receipt Date: 20100408
  Transmission Date: 20110219
  Serious: Yes (Hospitalization)
  Sender: FDA-Public Use
  Company Number: 545408

PATIENT
  Age: 75 Year
  Sex: Female

DRUGS (15)
  1. AMINOPHYLLIN [Suspect]
     Indication: CHEST DISCOMFORT
     Dosage: 75 MG
     Dates: start: 20100311, end: 20100311
  2. (CARDIOVASCULAR SYSTEM DRUGS) [Suspect]
     Dosage: 0.4 MG, TOTAL DOSE, INTRAVENOUS
     Route: 042
     Dates: start: 20100311, end: 20100311
  3. ASPIRIN [Concomitant]
  4. (CALCIUM) [Concomitant]
  5. (DIOVAN/01319601/) [Concomitant]
  6. EVISTA [Concomitant]
  7. NEFAZODONE HCL [Concomitant]
  8. NEXIUM [Concomitant]
  9. (OMEGA-3 /01168901/) [Concomitant]
  10. SYNTHROID [Concomitant]
  11. VITAMIN D [Concomitant]
  12. ZETIA [Concomitant]
  13. (ZICAM /01792001/) [Concomitant]
  14. (NITRO /00003201/) [Concomitant]
  15. LEVAQUIN [Concomitant]

REACTIONS (1)
  - TREMOR [None]
